FAERS Safety Report 14764618 (Version 2)
Quarter: 2018Q3

REPORT INFORMATION
  Report Type: Spontaneous
  Country: IT (occurrence: IT)
  Receive Date: 20180416
  Receipt Date: 20180702
  Transmission Date: 20181010
  Serious: Yes (Other)
  Sender: FDA-Public Use
  Company Number: IT-TEVA-2018-IT-880184

PATIENT
  Age: 10 Year
  Sex: Male
  Weight: 58 kg

DRUGS (1)
  1. ARIPIPRAZOLO TEVA 5 MG COMPRESSE [Suspect]
     Active Substance: ARIPIPRAZOLE
     Indication: CONDUCT DISORDER
     Dosage: 7.5 MILLIGRAM DAILY;
     Route: 048
     Dates: start: 20160712, end: 20170714

REACTIONS (3)
  - Therapeutic response decreased [Recovering/Resolving]
  - Obsessive thoughts [Recovering/Resolving]
  - Tic [Recovering/Resolving]

NARRATIVE: CASE EVENT DATE: 20170313
